FAERS Safety Report 17822849 (Version 3)
Quarter: 2020Q2

REPORT INFORMATION
  Report Type: Report from Study
  Country: None (occurrence: CA)
  Receive Date: 20200526
  Receipt Date: 20200622
  Transmission Date: 20200714
  Serious: Yes (Hospitalization)
  Sender: FDA-Public Use
  Company Number: CA-ABBVIE-20K-028-3414183-00

PATIENT
  Sex: Female

DRUGS (1)
  1. HUMIRA [Suspect]
     Active Substance: ADALIMUMAB
     Indication: RHEUMATOID ARTHRITIS
     Route: 058
     Dates: start: 20160811, end: 2020

REACTIONS (7)
  - Haemoptysis [Not Recovered/Not Resolved]
  - Asthenia [Unknown]
  - Lethargy [Not Recovered/Not Resolved]
  - General physical health deterioration [Unknown]
  - Hyperhidrosis [Unknown]
  - Pneumonia [Unknown]
  - Respiratory tract congestion [Not Recovered/Not Resolved]
